FAERS Safety Report 20629500 (Version 1)
Quarter: 2022Q1

REPORT INFORMATION
  Report Type: Spontaneous
  Country: DK (occurrence: DK)
  Receive Date: 20220323
  Receipt Date: 20220323
  Transmission Date: 20220423
  Serious: Yes (Death, Other)
  Sender: FDA-Public Use
  Company Number: None

PATIENT
  Age: 66 Year
  Sex: Female
  Weight: 88 kg

DRUGS (1)
  1. VEKLURY [Suspect]
     Active Substance: REMDESIVIR
     Indication: COVID-19
     Dosage: DOSE UNKNOWN. STRENGTH: 100 MG
     Route: 042
     Dates: start: 20220304

REACTIONS (2)
  - Cholecystitis acute [Fatal]
  - Abdominal pain [Fatal]

NARRATIVE: CASE EVENT DATE: 20220301
